FAERS Safety Report 14251042 (Version 1)
Quarter: 2017Q4

REPORT INFORMATION
  Report Type: Spontaneous
  Country: US (occurrence: None)
  Receive Date: 20171205
  Receipt Date: 20171205
  Transmission Date: 20180321
  Serious: Yes (Hospitalization)
  Sender: FDA-Public Use
  Company Number: None

PATIENT
  Age: 71 Year
  Sex: Male
  Weight: 131 kg

DRUGS (1)
  1. BACLOFEN. [Suspect]
     Active Substance: BACLOFEN
     Indication: BIPOLAR I DISORDER
     Route: 048
     Dates: start: 20170906, end: 20170920

REACTIONS (6)
  - Speech disorder [None]
  - Pressure of speech [None]
  - Therapy cessation [None]
  - Abnormal behaviour [None]
  - Euphoric mood [None]
  - Confusional state [None]

NARRATIVE: CASE EVENT DATE: 20170920
